FAERS Safety Report 4716153-1 (Version None)
Quarter: 2005Q3

REPORT INFORMATION
  Report Type: 
  Country: None (occurrence: None)
  Receive Date: 20050718
  Receipt Date: 20050315
  Transmission Date: 20060218
  Serious: Yes (Hospitalization)
  Sender: FDA-Public Use
  Company Number: CA-MERCK-0503CAN00222

PATIENT
  Age: 44 Year
  Sex: Male
  Weight: 75 kg

DRUGS (16)
  1. VIOXX [Suspect]
     Indication: RHEUMATOID ARTHRITIS
     Route: 048
     Dates: start: 19990101, end: 20040901
  2. VIOXX [Suspect]
     Indication: PAIN
     Route: 048
     Dates: start: 19990101, end: 20040901
  3. RAMIPRIL [Concomitant]
     Indication: HYPERTENSION
     Route: 065
     Dates: start: 20030101, end: 20030101
  4. LEFLUNOMIDE [Concomitant]
     Indication: ARTHRITIS
     Route: 065
     Dates: start: 20020101, end: 20040101
  5. CITALOPRAM HYDROBROMIDE [Concomitant]
     Route: 065
  6. CITALOPRAM HYDROBROMIDE [Concomitant]
     Route: 065
  7. ISOSORBIDE DINITRATE [Concomitant]
     Indication: ANGINA PECTORIS
     Route: 065
     Dates: start: 20030101, end: 20030101
  8. LORAZEPAM [Concomitant]
     Route: 065
  9. PREDNISONE [Concomitant]
     Indication: ANTIINFLAMMATORY THERAPY
     Route: 065
     Dates: start: 20030101, end: 20040101
  10. ACETAMINOPHEN AND CODEINE PHOSPHATE [Concomitant]
     Indication: PAIN
     Route: 065
     Dates: start: 20020101, end: 20040101
  11. AZITHROMYCIN [Concomitant]
     Route: 065
  12. BUPROPION HYDROCHLORIDE [Concomitant]
     Indication: EX-SMOKER
     Route: 065
  13. ASPIRIN [Concomitant]
     Route: 065
  14. ACETAMINOPHEN AND CODEINE PHOSPHATE [Concomitant]
     Route: 065
     Dates: start: 20020101, end: 20040101
  15. FOLIC ACID [Concomitant]
     Route: 065
  16. CYCLOBENZAPRINE HYDROCHLORIDE [Concomitant]
     Route: 065

REACTIONS (5)
  - ACUTE CORONARY SYNDROME [None]
  - ACUTE MYOCARDIAL INFARCTION [None]
  - BLOOD CHOLESTEROL INCREASED [None]
  - HYPERTENSION [None]
  - OBESITY [None]
